FAERS Safety Report 11884788 (Version 1)
Quarter: 2016Q1

REPORT INFORMATION
  Report Type: Spontaneous
  Country: US (occurrence: US)
  Receive Date: 20160104
  Receipt Date: 20160104
  Transmission Date: 20160526
  Serious: Yes (Hospitalization)
  Sender: FDA-Public Use
  Company Number: US-BEH-2015057312

PATIENT
  Age: 52 Year
  Sex: Female
  Weight: 74 kg

DRUGS (23)
  1. PHENAZOPYRIDINE. [Concomitant]
     Active Substance: PHENAZOPYRIDINE
  2. ACETAMINOPHEN. [Concomitant]
     Active Substance: ACETAMINOPHEN
  3. LIDOCAINE. [Concomitant]
     Active Substance: LIDOCAINE
  4. EPIPEN [Concomitant]
     Active Substance: EPINEPHRINE
  5. CYANOCOBALAMIN. [Concomitant]
     Active Substance: CYANOCOBALAMIN
  6. LAMICTAL [Concomitant]
     Active Substance: LAMOTRIGINE
  7. TOPAMAX [Concomitant]
     Active Substance: TOPIRAMATE
  8. HIZENTRA [Suspect]
     Active Substance: HUMAN IMMUNOGLOBULIN G
     Indication: IMMUNODEFICIENCY COMMON VARIABLE
     Route: 058
  9. PROZAC [Concomitant]
     Active Substance: FLUOXETINE HYDROCHLORIDE
  10. KLONOPIN [Concomitant]
     Active Substance: CLONAZEPAM
  11. NEXIUM [Concomitant]
     Active Substance: ESOMEPRAZOLE MAGNESIUM
  12. ZOFRAN [Concomitant]
     Active Substance: ONDANSETRON HYDROCHLORIDE
  13. HYDROCODONE BITARTRATE AND ACETAMINOPHEN [Concomitant]
     Active Substance: ACETAMINOPHEN\HYDROCODONE BITARTRATE
  14. DOXEPIN [Concomitant]
     Active Substance: DOXEPIN
  15. 5000 PLUS CREAM [Concomitant]
  16. CYCLOBENZAPRINE [Concomitant]
     Active Substance: CYCLOBENZAPRINE
  17. DIPHENHYDRAMINE. [Concomitant]
     Active Substance: DIPHENHYDRAMINE
  18. FAMOTIDINE. [Concomitant]
     Active Substance: FAMOTIDINE
  19. ESTRADIOL. [Concomitant]
     Active Substance: ESTRADIOL
  20. ADDERALL [Concomitant]
     Active Substance: AMPHETAMINE ASPARTATE\AMPHETAMINE SULFATE\DEXTROAMPHETAMINE SACCHARATE\DEXTROAMPHETAMINE SULFATE
  21. MORPHINE [Concomitant]
     Active Substance: MORPHINE
  22. KENALOG [Concomitant]
     Active Substance: TRIAMCINOLONE ACETONIDE
  23. DOXEPIN [Concomitant]
     Active Substance: DOXEPIN

REACTIONS (4)
  - Head injury [Unknown]
  - Iron deficiency [Unknown]
  - Loss of consciousness [Unknown]
  - Hypotension [Unknown]

NARRATIVE: CASE EVENT DATE: 20151215
